FAERS Safety Report 13860793 (Version 1)
Quarter: 2017Q3

REPORT INFORMATION
  Report Type: Spontaneous
  Country: US (occurrence: US)
  Receive Date: 20170811
  Receipt Date: 20170811
  Transmission Date: 20171127
  Serious: Yes (Hospitalization)
  Sender: FDA-Public Use
  Company Number: None

PATIENT
  Age: 42 Year
  Sex: Male
  Weight: 69.4 kg

DRUGS (3)
  1. CISPLATIN. [Suspect]
     Active Substance: CISPLATIN
     Dates: end: 20170418
  2. GEMCITABINE HYDROCHLORIDE. [Concomitant]
     Active Substance: GEMCITABINE HYDROCHLORIDE
     Dates: end: 20170719
  3. TAXOL [Concomitant]
     Active Substance: PACLITAXEL
     Dates: end: 20170719

REACTIONS (8)
  - Chills [None]
  - Mucosal inflammation [None]
  - Oral candidiasis [None]
  - Vomiting [None]
  - Body temperature increased [None]
  - Pneumonia [None]
  - Diarrhoea [None]
  - Respiratory failure [None]

NARRATIVE: CASE EVENT DATE: 20170731
